FAERS Safety Report 23952820 (Version 1)
Quarter: 2024Q2

REPORT INFORMATION
  Report Type: Spontaneous
  Country: US (occurrence: US)
  Receive Date: 20240607
  Receipt Date: 20240607
  Transmission Date: 20240715
  Serious: Yes (Other)
  Sender: FDA-Public Use
  Company Number: US-009507513-2405USA009616

PATIENT
  Age: 12 Year
  Sex: Male

DRUGS (2)
  1. TEMODAR [Suspect]
     Active Substance: TEMOZOLOMIDE
     Indication: Astrocytoma malignant
     Route: 048
  2. BEVACIZUMAB [Suspect]
     Active Substance: BEVACIZUMAB
     Indication: Astrocytoma malignant

REACTIONS (3)
  - Pancytopenia [Unknown]
  - Sepsis [Unknown]
  - Product use issue [Unknown]
